FAERS Safety Report 21345377 (Version 1)
Quarter: 2022Q3

REPORT INFORMATION
  Report Type: Spontaneous
  Country: DE (occurrence: None)
  Receive Date: 20220916
  Receipt Date: 20220916
  Transmission Date: 20221027
  Serious: Yes (Life-Threatening, Hospitalization)
  Sender: FDA-Public Use
  Company Number: 2022A316653

PATIENT
  Age: 68 Year
  Sex: Female

DRUGS (6)
  1. OMEPRAZOLE [Interacting]
     Active Substance: OMEPRAZOLE
     Dosage: 20.0MG UNKNOWN
     Route: 048
  2. ASPIRIN [Interacting]
     Active Substance: ASPIRIN
     Dosage: 100.0MG UNKNOWN
     Route: 048
  3. RAMIPRIL [Concomitant]
     Active Substance: RAMIPRIL
     Dosage: 2.5 MG, IF NECESSARY, TABLETS2.5MG UNKNOWN
     Route: 048
  4. SIMVASTATIN [Concomitant]
     Active Substance: SIMVASTATIN
     Dosage: 20 MG, 1-0-0-0, TABLETS20.0MG UNKNOWN
     Route: 048
  5. BISOPROLOL [Concomitant]
     Active Substance: BISOPROLOL
     Dosage: 5 MG, 1-0-0-0, TABLETS5.0MG UNKNOWN
     Route: 048
  6. HYDROCHLOROTHIAZIDE\RAMIPRIL [Concomitant]
     Active Substance: HYDROCHLOROTHIAZIDE\RAMIPRIL
     Dosage: 25/5 MG
     Route: 048

REACTIONS (10)
  - Drug interaction [Unknown]
  - Sensory disturbance [Unknown]
  - Aphasia [Unknown]
  - Facial paresis [Unknown]
  - Aphasia [Unknown]
  - Transient ischaemic attack [Unknown]
  - Dizziness [Unknown]
  - Paraesthesia [Unknown]
  - Contraindicated product administered [Unknown]
  - Therapeutic product effect decreased [Unknown]
